FAERS Safety Report 7705067-0 (Version None)
Quarter: 2011Q3

REPORT INFORMATION
  Report Type: 
  Country: None (occurrence: None)
  Receive Date: 20110823
  Receipt Date: 20110818
  Transmission Date: 20111222
  Serious: Yes (Other)
  Sender: FDA-Public Use
  Company Number: SE-MERCK-1108SWE00011

PATIENT
  Age: 70 Year
  Sex: Female

DRUGS (9)
  1. SOTALOL HYDROCHLORIDE [Concomitant]
     Route: 048
  2. HYDROCORTISONE [Concomitant]
     Route: 065
  3. FOSAMAX [Suspect]
     Indication: OSTEOPOROSIS
     Route: 048
     Dates: start: 20080514
  4. FLUTICASONE PROPIONATE AND SALMETEROL XINAFOATE [Concomitant]
     Route: 055
  5. CALCIUM CARBONATE AND CHOLECALCIFEROL [Concomitant]
     Route: 048
  6. VALPROATE SODIUM [Concomitant]
     Route: 048
  7. UREA [Concomitant]
     Route: 061
  8. LOSARTAN POTASSIUM [Concomitant]
     Route: 048
  9. FELODIPINE [Concomitant]
     Route: 048

REACTIONS (1)
  - OSTEONECROSIS [None]
